FAERS Safety Report 12832591 (Version 4)
Quarter: 2022Q2

REPORT INFORMATION
  Report Type: Spontaneous
  Country: US (occurrence: US)
  Receive Date: 20161010
  Receipt Date: 20220419
  Transmission Date: 20220721
  Serious: No
  Sender: FDA-Public Use
  Company Number: US-JAZZ-2016-US-013465

PATIENT
  Sex: Male

DRUGS (22)
  1. XYREM [Suspect]
     Active Substance: SODIUM OXYBATE
     Indication: Narcolepsy
     Dosage: 1.25 G, BID
     Route: 048
     Dates: start: 201211, end: 201212
  2. XYREM [Suspect]
     Active Substance: SODIUM OXYBATE
     Indication: Cataplexy
     Dosage: DOSE ADJUSTMENT
     Route: 048
     Dates: start: 201212, end: 201301
  3. XYREM [Suspect]
     Active Substance: SODIUM OXYBATE
     Indication: Somnolence
     Dosage: 4.5 G, BID
     Route: 048
     Dates: start: 201301
  4. TYLENOL [Suspect]
     Active Substance: ACETAMINOPHEN
     Indication: Product used for unknown indication
     Dosage: UNK
  5. BENICAR [Suspect]
     Active Substance: OLMESARTAN MEDOXOMIL
     Indication: Product used for unknown indication
     Dosage: UNK
     Route: 048
  6. BENICAR [Suspect]
     Active Substance: OLMESARTAN MEDOXOMIL
     Dosage: UNK
     Route: 048
  7. DICYCLOMINE HYDROCHLORIDE [Concomitant]
     Active Substance: DICYCLOMINE HYDROCHLORIDE
  8. HYDROCHLOROTHIAZIDE [Concomitant]
     Active Substance: HYDROCHLOROTHIAZIDE
     Dosage: 0000
     Dates: start: 20160118
  9. LOSARTAN POTASSIUM [Concomitant]
     Active Substance: LOSARTAN POTASSIUM
     Dosage: 0000
     Dates: start: 20160118
  10. REMERON [Concomitant]
     Active Substance: MIRTAZAPINE
  11. ADDERALL [Concomitant]
     Active Substance: AMPHETAMINE ASPARTATE\AMPHETAMINE SULFATE\DEXTROAMPHETAMINE SACCHARATE\DEXTROAMPHETAMINE SULFATE
     Dosage: 0000
     Dates: start: 20160102
  12. DIAZEPAM [Concomitant]
     Active Substance: DIAZEPAM
  13. AXIRON [Concomitant]
     Active Substance: TESTOSTERONE
  14. CYMBALTA [Concomitant]
     Active Substance: DULOXETINE HYDROCHLORIDE
  15. LEVOTHYROXINE [Concomitant]
     Active Substance: LEVOTHYROXINE
     Dosage: 0000
     Dates: start: 20120801
  16. TRILIPIX [Concomitant]
     Active Substance: FENOFIBRIC ACID
  17. VITAMIN D NOS [Concomitant]
     Active Substance: VITAMIN D NOS
  18. NUTROPIN [Concomitant]
     Active Substance: SOMATROPIN
  19. LORATADINE [Concomitant]
     Active Substance: LORATADINE
  20. CYCLOBENZAPRINE HYDROCHLORIDE [Concomitant]
     Active Substance: CYCLOBENZAPRINE HYDROCHLORIDE
  21. OXYCODONE HYDROCHLORIDE [Concomitant]
     Active Substance: OXYCODONE HYDROCHLORIDE
  22. BUSPIRONE HCL [Concomitant]
     Active Substance: BUSPIRONE HYDROCHLORIDE
     Dosage: 0000
     Dates: start: 20190325

REACTIONS (9)
  - Hepatic enzyme abnormal [Unknown]
  - Red blood cell sedimentation rate increased [Unknown]
  - Fibromyalgia [Unknown]
  - Lipoma [Not Recovered/Not Resolved]
  - Screaming [Not Recovered/Not Resolved]
  - Movement disorder [Not Recovered/Not Resolved]
  - Abdominal discomfort [Not Recovered/Not Resolved]
  - Initial insomnia [Unknown]
  - Pain [Not Recovered/Not Resolved]

NARRATIVE: CASE EVENT DATE: 20150101
